FAERS Safety Report 25373621 (Version 1)
Quarter: 2025Q2

REPORT INFORMATION
  Report Type: Spontaneous
  Country: US (occurrence: US)
  Receive Date: 20250529
  Receipt Date: 20250529
  Transmission Date: 20250716
  Serious: Yes (Hospitalization, Other)
  Sender: Day One Biopharmaceuticals
  Company Number: US-Day One Biopharmaceuticals Inc.-2025US000717

PATIENT

DRUGS (1)
  1. OJEMDA [Suspect]
     Active Substance: TOVORAFENIB
     Indication: Sarcoma
     Route: 065
     Dates: start: 2024

REACTIONS (6)
  - Growth retardation [Unknown]
  - Pneumonia [Recovered/Resolved]
  - Respiratory depression [Recovered/Resolved]
  - Off label use [Unknown]
  - Anaemia [Unknown]
  - Hair colour changes [Unknown]

NARRATIVE: CASE EVENT DATE: 20240101
